FAERS Safety Report 24228644 (Version 1)
Quarter: 2024Q3

REPORT INFORMATION
  Report Type: Spontaneous
  Country: US (occurrence: None)
  Receive Date: 20240819
  Receipt Date: 20240819
  Transmission Date: 20241017
  Serious: Yes (unspecified)
  Sender: Public
  Company Number: None

PATIENT
  Age: 72 Year
  Sex: Male

DRUGS (1)
  1. INLYTA [Suspect]
     Active Substance: AXITINIB
     Dosage: FREQUENCY : TWICE A DAY;?
     Route: 048
     Dates: end: 20240717

REACTIONS (6)
  - Fatigue [None]
  - Ageusia [None]
  - Muscle twitching [None]
  - Pallor [None]
  - Vomiting [None]
  - Decreased appetite [None]
